FAERS Safety Report 16740913 (Version 1)
Quarter: 2019Q4

REPORT INFORMATION
  Report Type: Spontaneous
  Country: US (occurrence: US)
  Receive Date: 20190826
  Receipt Date: 20190826
  Transmission Date: 20200122
  Serious: Yes (Other)
  Sender: FDA-Public Use
  Company Number: None

PATIENT
  Age: 73 Year
  Sex: Female
  Weight: 60.3 kg

DRUGS (2)
  1. MELPHALAN. [Suspect]
     Active Substance: MELPHALAN
     Indication: PLASMA CELL MYELOMA
     Dosage: ?          OTHER FREQUENCY:QD X4 DAY Q4W;?
     Route: 048
     Dates: start: 20180719
  2. POMALYST 2 MG CAPSULES [Concomitant]
     Dates: start: 20180202

REACTIONS (1)
  - Constipation [None]

NARRATIVE: CASE EVENT DATE: 20190819
